FAERS Safety Report 4884509-2 (Version None)
Quarter: 2005Q4

REPORT INFORMATION
  Report Type: 
  Country: None (occurrence: None)
  Receive Date: 20051201
  Receipt Date: 20050912
  Transmission Date: 20060501
  Serious: No
  Sender: FDA-Public Use
  Company Number: 2005PV002025

PATIENT
  Age: 49 Year
  Sex: Female
  Weight: 114.3065 kg

DRUGS (10)
  1. BYETTA [Suspect]
     Indication: DIABETES MELLITUS NON-INSULIN-DEPENDENT
     Dosage: 5 MCG;BID;SC
     Route: 058
     Dates: start: 20050825
  2. METFORMIN [Concomitant]
  3. CELEXA [Concomitant]
  4. AVAPRO [Concomitant]
  5. AMARYL [Concomitant]
  6. LIPITOR [Concomitant]
  7. ASPIRIN [Concomitant]
  8. CARDIZEM [Concomitant]
  9. AVANDIA [Concomitant]
  10. AVALIDE [Concomitant]

REACTIONS (2)
  - AMENORRHOEA [None]
  - HEADACHE [None]
